FAERS Safety Report 9552781 (Version 2)
Quarter: 2013Q3

REPORT INFORMATION
  Report Type: Spontaneous
  Country: US (occurrence: US)
  Receive Date: 20130925
  Receipt Date: 20130925
  Transmission Date: 20140515
  Serious: No
  Sender: FDA-Public Use
  Company Number: US-PURDUE-USA-2013-0099116

PATIENT
  Age: 49 Year
  Sex: 0

DRUGS (2)
  1. MS CONTIN TABLETS [Suspect]
     Indication: INTERVERTEBRAL DISC DEGENERATION
     Dosage: UNK
     Route: 048
  2. MS CONTIN TABLETS [Suspect]
     Indication: PAIN

REACTIONS (1)
  - Drug ineffective [Unknown]
